FAERS Safety Report 26202875 (Version 1)
Quarter: 2025Q4

REPORT INFORMATION
  Report Type: Spontaneous
  Country: CA (occurrence: CA)
  Receive Date: 20251226
  Receipt Date: 20251226
  Transmission Date: 20260117
  Serious: Yes (Hospitalization, Congenital Anomaly)
  Sender: TEVA
  Company Number: CA-TEVA-VS-3407049

PATIENT
  Age: 11 Day
  Sex: Female
  Weight: 2 kg

DRUGS (1)
  1. MORPHINE SULFATE [Suspect]
     Active Substance: MORPHINE SULFATE
     Indication: Maternal exposure during pregnancy
     Dosage: DOSE FORM: NOT SPECIFIED
     Route: 064

REACTIONS (9)
  - Congenital knee dislocation [Unknown]
  - Infant irritability [Unknown]
  - Foetal exposure during pregnancy [Unknown]
  - Drug withdrawal syndrome neonatal [Unknown]
  - Growth disorder [Unknown]
  - Neonatal pneumonia [Unknown]
  - Diarrhoea [Unknown]
  - Tachypnoea [Unknown]
  - Regurgitation [Unknown]
